FAERS Safety Report 9025238 (Version 1)
Quarter: 2013Q1

REPORT INFORMATION
  Report Type: Spontaneous
  Country: MX (occurrence: MX)
  Receive Date: 20130122
  Receipt Date: 20130122
  Transmission Date: 20140127
  Serious: Yes (Death, Life-Threatening, Hospitalization)
  Sender: FDA-Public Use
  Company Number: MX-ASTRAZENECA-2013SE04251

PATIENT
  Sex: Male
  Weight: 85 kg

DRUGS (1)
  1. CRESTOR [Suspect]
     Indication: HYPERCHOLESTEROLAEMIA
     Route: 048

REACTIONS (3)
  - Lactic acidosis [Fatal]
  - Respiratory failure [Not Recovered/Not Resolved]
  - Muscle necrosis [Unknown]
